FAERS Safety Report 4362973-5 (Version None)
Quarter: 2004Q2

REPORT INFORMATION
  Report Type: 
  Country: None (occurrence: None)
  Receive Date: 20040518
  Receipt Date: 20040510
  Transmission Date: 20050107
  Serious: Yes (Death)
  Sender: FDA-Public Use
  Company Number: 2004GB01160

PATIENT
  Age: 93 Year
  Sex: Female
  Weight: 65 kg

DRUGS (2)
  1. QUETIAPINE [Suspect]
     Indication: AFFECT LABILITY
     Dosage: 600 MG DAILY PO
     Route: 048
     Dates: start: 20040408
  2. QUETIAPINE [Suspect]
     Indication: AGITATION
     Dosage: 600 MG DAILY PO
     Route: 048
     Dates: start: 20040408

REACTIONS (1)
  - SUDDEN DEATH [None]
